FAERS Safety Report 4300773-2 (Version None)
Quarter: 2004Q1

REPORT INFORMATION
  Report Type: 
  Country: None (occurrence: None)
  Receive Date: 20040218
  Receipt Date: 20040203
  Transmission Date: 20041129
  Serious: Yes (Death)
  Sender: FDA-Public Use
  Company Number: 2003IM000466

PATIENT
  Age: 50 Year
  Sex: Male
  Weight: 72.1219 kg

DRUGS (4)
  1. ACTIMMUNE [Suspect]
     Indication: HEPATIC CIRRHOSIS
     Dosage: 200 UG; TIW; SUBCUTANEOUS
     Route: 058
     Dates: start: 20021016, end: 20030103
  2. ACTIMMUNE [Suspect]
     Indication: HEPATIC FIBROSIS
     Dosage: 200 UG; TIW; SUBCUTANEOUS
     Route: 058
     Dates: start: 20021016, end: 20030103
  3. ACTIMMUNE [Suspect]
     Indication: HEPATITIS C
     Dosage: 200 UG; TIW; SUBCUTANEOUS
     Route: 058
     Dates: start: 20021016, end: 20030103
  4. CELEXA [Concomitant]

REACTIONS (1)
  - COMPLETED SUICIDE [None]
